FAERS Safety Report 23521959 (Version 1)
Quarter: 2024Q1

REPORT INFORMATION
  Report Type: Spontaneous
  Country: FR (occurrence: FR)
  Receive Date: 20240214
  Receipt Date: 20240214
  Transmission Date: 20240409
  Serious: Yes (Hospitalization)
  Sender: FDA-Public Use
  Company Number: FR-SA-2018SA127581

PATIENT
  Age: 61 Year
  Sex: Female

DRUGS (11)
  1. ALPRAZOLAM [Suspect]
     Active Substance: ALPRAZOLAM
     Indication: Anxiety
     Dosage: 1 DF,PRN
     Route: 048
     Dates: start: 20180412
  2. AMITRIPTYLINE HYDROCHLORIDE [Suspect]
     Active Substance: AMITRIPTYLINE HYDROCHLORIDE
     Indication: Pain
     Dosage: 10 DF,QD
     Route: 048
     Dates: start: 20180406
  3. LOVENOX [Suspect]
     Active Substance: ENOXAPARIN SODIUM
     Indication: Anticoagulant therapy
     Dosage: 4000 IU,QD
     Route: 058
     Dates: start: 20180409, end: 20180416
  4. POLYETHYLENE GLYCOL 3350 [Suspect]
     Active Substance: POLYETHYLENE GLYCOL 3350
     Indication: Constipation
     Dosage: 2 DF,QD
     Route: 048
     Dates: start: 20180410
  5. MORPHINE HYDROCHLORIDE [Suspect]
     Active Substance: MORPHINE HYDROCHLORIDE
     Indication: Pain
     Dosage: 40 MG,QD
     Route: 042
     Dates: start: 20180406
  6. NEURONTIN [Suspect]
     Active Substance: GABAPENTIN
     Indication: Neuralgia
     Dosage: 600 MG,QD
     Route: 048
     Dates: start: 20180406
  7. PANTOPRAZOLE SODIUM [Suspect]
     Active Substance: PANTOPRAZOLE SODIUM
     Indication: Gastrooesophageal reflux disease
     Dosage: 40 MG,QD
     Route: 048
     Dates: start: 20180406
  8. ACETAMINOPHEN [Suspect]
     Active Substance: ACETAMINOPHEN
     Indication: Pain
     Dosage: 3000 MG,QD
     Route: 048
     Dates: start: 20180412
  9. SOLU-MEDROL [Suspect]
     Active Substance: METHYLPREDNISOLONE SODIUM SUCCINATE
     Indication: Adrenal insufficiency
     Dosage: 60 MG,QD
     Route: 042
     Dates: start: 20180329, end: 20180415
  10. TEGRETOL [Suspect]
     Active Substance: CARBAMAZEPINE
     Indication: Neuralgia
     Dosage: UNK
     Route: 048
     Dates: start: 20180403, end: 20180410
  11. ZOPICLONE [Suspect]
     Active Substance: ZOPICLONE
     Indication: Insomnia
     Dosage: 7.5 MG,QD
     Route: 048
     Dates: start: 20180412, end: 20180414

REACTIONS (1)
  - Rash maculo-papular [Recovering/Resolving]

NARRATIVE: CASE EVENT DATE: 20180413
